FAERS Safety Report 24406806 (Version 2)
Quarter: 2024Q4

REPORT INFORMATION
  Report Type: Spontaneous
  Country: US (occurrence: US)
  Receive Date: 20241007
  Receipt Date: 20241011
  Transmission Date: 20250114
  Serious: Yes (Hospitalization, Other)
  Sender: PFIZER
  Company Number: US-MLMSERVICE-20240923-PI202334-00162-1

PATIENT
  Age: 70 Year
  Sex: Female

DRUGS (1)
  1. FUROSEMIDE [Suspect]
     Active Substance: FUROSEMIDE
     Indication: Renal failure
     Dosage: UNK, RECEIVED A FEW DOSES BEFORE STARTING DIALYSIS

REACTIONS (5)
  - Encephalopathy [Recovered/Resolved]
  - Gastrointestinal ulcer haemorrhage [Unknown]
  - Acute febrile neutrophilic dermatosis [Recovered/Resolved]
  - Gastrointestinal haemorrhage [Unknown]
  - Gastric mucosal hypertrophy [Unknown]
